FAERS Safety Report 21101057 (Version 2)
Quarter: 2022Q3

REPORT INFORMATION
  Report Type: Spontaneous
  Country: US (occurrence: US)
  Receive Date: 20220719
  Receipt Date: 20220815
  Transmission Date: 20221026
  Serious: No
  Sender: FDA-Public Use
  Company Number: US-PFIZER INC-202200962255

PATIENT
  Age: 78 Year
  Sex: Female

DRUGS (2)
  1. PAXLOVID [Suspect]
     Active Substance: NIRMATRELVIR\RITONAVIR
     Indication: COVID-19 treatment
     Dosage: [PF-07321332 300 MG]/[RITONAVIR 100 MG]; 2X/DAY
     Dates: start: 20220713
  2. VENTOLIN [Concomitant]
     Active Substance: ALBUTEROL SULFATE
     Indication: Asthma
     Dosage: AS NEEDED
     Dates: start: 202205

REACTIONS (7)
  - Dysgeusia [Not Recovered/Not Resolved]
  - Product taste abnormal [Unknown]
  - Therapeutic response unexpected [Unknown]
  - Chest pain [Not Recovered/Not Resolved]
  - Back pain [Not Recovered/Not Resolved]
  - Off label use [Unknown]
  - Product use issue [Unknown]

NARRATIVE: CASE EVENT DATE: 20220701
